FAERS Safety Report 5479387-7 (Version None)
Quarter: 2007Q4

REPORT INFORMATION
  Report Type: 
  Country: None (occurrence: None)
  Receive Date: 20071008
  Receipt Date: 20070926
  Transmission Date: 20080405
  Serious: Yes (Hospitalization, Other)
  Sender: FDA-Public Use
  Company Number: US-AMGEN-QUU245133

PATIENT
  Sex: Female

DRUGS (1)
  1. ENBREL [Suspect]
     Indication: RHEUMATOID ARTHRITIS
     Route: 058
     Dates: start: 19981001

REACTIONS (8)
  - CHRONIC OBSTRUCTIVE PULMONARY DISEASE [None]
  - DRY MOUTH [None]
  - INFECTED SKIN ULCER [None]
  - ORAL CANDIDIASIS [None]
  - RASH PRURITIC [None]
  - SKIN INFECTION [None]
  - SKIN ULCER [None]
  - TEETH BRITTLE [None]
